FAERS Safety Report 25899097 (Version 1)
Quarter: 2025Q4

REPORT INFORMATION
  Report Type: Spontaneous
  Country: US (occurrence: US)
  Receive Date: 20251009
  Receipt Date: 20251009
  Transmission Date: 20260118
  Serious: Yes (Other)
  Sender: COOPERSURGICAL
  Company Number: US-COOPERSURGICAL, INC.-2025CPS007158

PATIENT
  Age: 24 Year
  Sex: Female
  Weight: 62.132 kg

DRUGS (6)
  1. PARAGARD T 380A [Suspect]
     Active Substance: COPPER
     Indication: Contraception
     Dosage: UNK
     Route: 015
     Dates: start: 20230531, end: 20240421
  2. LAMOTRIGINE [Concomitant]
     Active Substance: LAMOTRIGINE
     Dosage: UNK
     Dates: start: 20201201
  3. FOCALIN XR [Concomitant]
     Active Substance: DEXMETHYLPHENIDATE HYDROCHLORIDE
     Dosage: UNK
     Dates: start: 20201201
  4. TRAZODONE [Concomitant]
     Active Substance: TRAZODONE HYDROCHLORIDE
     Dosage: UNK
     Dates: start: 20201201
  5. PROZAC [Concomitant]
     Active Substance: FLUOXETINE HYDROCHLORIDE
     Dosage: UNK
     Dates: start: 20201201
  6. TOPAMAX [Concomitant]
     Active Substance: TOPIRAMATE
     Dosage: UNK
     Dates: start: 20201201

REACTIONS (7)
  - Reproductive complication associated with device [Not Recovered/Not Resolved]
  - Urinary tract infection [Unknown]
  - Dysuria [Recovered/Resolved]
  - Pollakiuria [Unknown]
  - Micturition urgency [Unknown]
  - Heavy menstrual bleeding [Unknown]
  - Vaginal infection [Unknown]

NARRATIVE: CASE EVENT DATE: 20230710
